FAERS Safety Report 12048122 (Version 1)
Quarter: 2016Q1

REPORT INFORMATION
  Report Type: Spontaneous
  Country: US (occurrence: US)
  Receive Date: 20160209
  Receipt Date: 20160209
  Transmission Date: 20160526
  Serious: No
  Sender: FDA-Public Use
  Company Number: US-BIOGEN-2016BI00181636

PATIENT
  Sex: Female

DRUGS (1)
  1. TECFIDERA [Suspect]
     Active Substance: DIMETHYL FUMARATE
     Indication: MULTIPLE SCLEROSIS
     Dates: start: 20151229, end: 20160119

REACTIONS (4)
  - Feeding disorder [Recovered/Resolved]
  - Cognitive disorder [Unknown]
  - Malaise [Recovered/Resolved]
  - Dysgeusia [Recovered/Resolved]
